FAERS Safety Report 15249140 (Version 4)
Quarter: 2018Q4

REPORT INFORMATION
  Report Type: Spontaneous
  Country: US (occurrence: US)
  Receive Date: 20180807
  Receipt Date: 20181227
  Transmission Date: 20190204
  Serious: Yes (Other)
  Sender: FDA-Public Use
  Company Number: US-AMGEN-USASP2018106399

PATIENT
  Age: 46 Year
  Sex: Female

DRUGS (13)
  1. ENBREL [Suspect]
     Active Substance: ETANERCEPT
     Dosage: 50 MG, QWK
     Route: 065
  2. DICYCLOMINE HCL [Concomitant]
     Active Substance: DICYCLOMINE HYDROCHLORIDE
     Dosage: UNK
     Route: 065
  3. KETOROLAC [Concomitant]
     Active Substance: KETOROLAC\KETOROLAC TROMETHAMINE
     Dosage: UNK
     Route: 065
  4. REGLAN [Concomitant]
     Active Substance: METOCLOPRAMIDE HYDROCHLORIDE
     Dosage: UNK
     Route: 065
  5. AMITRIPTYLINE HCL [Concomitant]
     Active Substance: AMITRIPTYLINE
     Dosage: UNK
     Route: 065
  6. SULFASALAZINE. [Concomitant]
     Active Substance: SULFASALAZINE
     Dosage: UNK
     Route: 065
  7. MAGNESIUM [Concomitant]
     Active Substance: MAGNESIUM
     Dosage: 300 MG, UNK
     Route: 065
  8. ENBREL [Suspect]
     Active Substance: ETANERCEPT
     Dosage: 50 MG, 2 TIMES/WK
     Route: 058
  9. TALTZ [Concomitant]
     Active Substance: IXEKIZUMAB
  10. VITAMIN D [Concomitant]
     Active Substance: CHOLECALCIFEROL
     Dosage: 1000 UNIT, UNK
     Route: 065
  11. LOSARTAN POTASSIUM. [Concomitant]
     Active Substance: LOSARTAN POTASSIUM
     Dosage: UNK
     Route: 065
  12. ENBREL [Suspect]
     Active Substance: ETANERCEPT
     Indication: PSORIATIC ARTHROPATHY
     Dosage: 50 MG, 2 TIMES/WK
     Route: 058
     Dates: start: 20180706, end: 20181101
  13. TROMETHAMINE. [Concomitant]
     Active Substance: TROMETHAMINE
     Dosage: UNK
     Route: 065

REACTIONS (11)
  - Psoriatic arthropathy [Unknown]
  - Hyperhidrosis [Unknown]
  - Injection site warmth [Unknown]
  - Abdominal pain upper [Recovered/Resolved]
  - Injection site erythema [Not Recovered/Not Resolved]
  - Thirst [Recovered/Resolved]
  - Acne [Unknown]
  - Alopecia [Unknown]
  - Dizziness [Recovered/Resolved]
  - Injection site pruritus [Unknown]
  - Off label use [Unknown]

NARRATIVE: CASE EVENT DATE: 2018
